FAERS Safety Report 17794808 (Version 2)
Quarter: 2020Q2

REPORT INFORMATION
  Report Type: Spontaneous
  Country: CN (occurrence: CN)
  Receive Date: 20200515
  Receipt Date: 20200519
  Transmission Date: 20200714
  Serious: Yes (Death)
  Sender: FDA-Public Use
  Company Number: CN-ASTRAZENECA-2020SE63593

PATIENT
  Sex: Male

DRUGS (2)
  1. TAGRISSO [Suspect]
     Active Substance: OSIMERTINIB
     Indication: NON-SMALL CELL LUNG CANCER
     Route: 048
     Dates: start: 2019
  2. IRESSA [Suspect]
     Active Substance: GEFITINIB
     Route: 048

REACTIONS (1)
  - No adverse event [Unknown]
